FAERS Safety Report 6680239-5 (Version None)
Quarter: 2010Q2

REPORT INFORMATION
  Report Type: 
  Country: None (occurrence: None)
  Receive Date: 20100413
  Receipt Date: 20091228
  Transmission Date: 20101027
  Serious: No
  Sender: FDA-Public Use
  Company Number: US-BAUSCH-2009BL006824

PATIENT
  Sex: Female

DRUGS (1)
  1. OFLOXACIN [Suspect]
     Route: 047
     Dates: start: 20091225, end: 20101225

REACTIONS (4)
  - DRY EYE [None]
  - INCORRECT ROUTE OF DRUG ADMINISTRATION [None]
  - VISION BLURRED [None]
  - WRONG DRUG ADMINISTERED [None]
